FAERS Safety Report 10081879 (Version 1)
Quarter: 2014Q2

REPORT INFORMATION
  Report Type: Spontaneous
  Country: US (occurrence: None)
  Receive Date: 20140415
  Receipt Date: 20140415
  Transmission Date: 20141212
  Serious: Yes (Hospitalization)
  Sender: FDA-Public Use
  Company Number: None

PATIENT
  Age: 68 Year
  Sex: Male
  Weight: 86.3 kg

DRUGS (2)
  1. WARFARIN [Suspect]
     Dates: start: 20120905
  2. ENOXAPARIN [Suspect]
     Dates: start: 20140327, end: 20140409

REACTIONS (5)
  - Dyspnoea [None]
  - Haemoglobin decreased [None]
  - Hypotension [None]
  - Duodenal ulcer [None]
  - Haemorrhage [None]
